FAERS Safety Report 23428484 (Version 1)
Quarter: 2024Q1

REPORT INFORMATION
  Report Type: Other
  Country: FR (occurrence: None)
  Receive Date: 20240122
  Receipt Date: 20240122
  Transmission Date: 20240410
  Serious: Yes (Death, Other)
  Sender: FDA-Public Use
  Company Number: FR-ROCHE-3493735

PATIENT

DRUGS (30)
  1. ATEZOLIZUMAB [Suspect]
     Active Substance: ATEZOLIZUMAB
     Indication: Malignant melanoma
     Route: 065
  2. ATEZOLIZUMAB [Suspect]
     Active Substance: ATEZOLIZUMAB
     Indication: Non-small cell lung cancer
  3. ATEZOLIZUMAB [Suspect]
     Active Substance: ATEZOLIZUMAB
     Indication: Sarcoma
  4. ATEZOLIZUMAB [Suspect]
     Active Substance: ATEZOLIZUMAB
     Indication: Prostate cancer
  5. ATEZOLIZUMAB [Suspect]
     Active Substance: ATEZOLIZUMAB
     Indication: Head and neck cancer
  6. ATEZOLIZUMAB [Suspect]
     Active Substance: ATEZOLIZUMAB
     Indication: Endometrial cancer
  7. PEMBROLIZUMAB [Suspect]
     Active Substance: PEMBROLIZUMAB
     Indication: Malignant melanoma
     Route: 065
  8. PEMBROLIZUMAB [Suspect]
     Active Substance: PEMBROLIZUMAB
     Indication: Non-small cell lung cancer
  9. PEMBROLIZUMAB [Suspect]
     Active Substance: PEMBROLIZUMAB
     Indication: Sarcoma
  10. PEMBROLIZUMAB [Suspect]
     Active Substance: PEMBROLIZUMAB
     Indication: Prostate cancer
  11. PEMBROLIZUMAB [Suspect]
     Active Substance: PEMBROLIZUMAB
     Indication: Head and neck cancer
  12. PEMBROLIZUMAB [Suspect]
     Active Substance: PEMBROLIZUMAB
     Indication: Endometrial cancer
  13. NIVOLUMAB [Suspect]
     Active Substance: NIVOLUMAB
     Indication: Malignant melanoma
     Route: 065
  14. NIVOLUMAB [Suspect]
     Active Substance: NIVOLUMAB
     Indication: Non-small cell lung cancer
  15. NIVOLUMAB [Suspect]
     Active Substance: NIVOLUMAB
     Indication: Sarcoma
  16. NIVOLUMAB [Suspect]
     Active Substance: NIVOLUMAB
     Indication: Prostate cancer
  17. NIVOLUMAB [Suspect]
     Active Substance: NIVOLUMAB
     Indication: Head and neck cancer
  18. NIVOLUMAB [Suspect]
     Active Substance: NIVOLUMAB
     Indication: Endometrial cancer
  19. IPILIMUMAB [Suspect]
     Active Substance: IPILIMUMAB
     Indication: Malignant melanoma
     Route: 065
  20. IPILIMUMAB [Suspect]
     Active Substance: IPILIMUMAB
     Indication: Non-small cell lung cancer
  21. IPILIMUMAB [Suspect]
     Active Substance: IPILIMUMAB
     Indication: Sarcoma
  22. IPILIMUMAB [Suspect]
     Active Substance: IPILIMUMAB
     Indication: Prostate cancer
  23. IPILIMUMAB [Suspect]
     Active Substance: IPILIMUMAB
     Indication: Head and neck cancer
  24. IPILIMUMAB [Suspect]
     Active Substance: IPILIMUMAB
     Indication: Endometrial cancer
  25. RELATLIMAB [Suspect]
     Active Substance: RELATLIMAB
     Indication: Malignant melanoma
     Route: 065
  26. RELATLIMAB [Suspect]
     Active Substance: RELATLIMAB
     Indication: Non-small cell lung cancer
  27. RELATLIMAB [Suspect]
     Active Substance: RELATLIMAB
     Indication: Sarcoma
  28. RELATLIMAB [Suspect]
     Active Substance: RELATLIMAB
     Indication: Prostate cancer
  29. RELATLIMAB [Suspect]
     Active Substance: RELATLIMAB
     Indication: Head and neck cancer
  30. RELATLIMAB [Suspect]
     Active Substance: RELATLIMAB
     Indication: Endometrial cancer

REACTIONS (18)
  - Colitis [Fatal]
  - Enterocolitis [Fatal]
  - Pancreatitis [Unknown]
  - Necrotising gastritis [Unknown]
  - Duodenitis haemorrhagic [Unknown]
  - Enteritis [Unknown]
  - Hepatitis [Unknown]
  - Cholangitis [Unknown]
  - Thyroiditis [Unknown]
  - Pneumonitis [Unknown]
  - Gastritis erosive [Unknown]
  - Ulcerative gastritis [Unknown]
  - Gastritis haemorrhagic [Unknown]
  - Erosive duodenitis [Unknown]
  - Ulcerative duodenitis [Unknown]
  - Pneumomediastinum [Unknown]
  - Gastric ulcer [Unknown]
  - Oesophagitis ulcerative [Unknown]
